FAERS Safety Report 20429106 (Version 1)
Quarter: 2022Q1

REPORT INFORMATION
  Report Type: Spontaneous
  Country: US (occurrence: None)
  Receive Date: 20220203
  Receipt Date: 20220203
  Transmission Date: 20220423
  Serious: Yes (Other)
  Sender: FDA-Public Use
  Company Number: None

PATIENT
  Age: 38 Year
  Sex: Female
  Weight: 66.15 kg

DRUGS (2)
  1. GAMUNEX-C [Suspect]
     Active Substance: HUMAN IMMUNOGLOBULIN G
     Indication: Chronic inflammatory demyelinating polyradiculoneuropathy
     Dosage: OTHER FREQUENCY : 3 TIMES EVERY 4 WK;?
     Route: 042
     Dates: start: 20210503
  2. GAMUNEX [Suspect]
     Active Substance: HUMAN IMMUNOGLOBULIN G
     Indication: Chronic inflammatory demyelinating polyradiculoneuropathy
     Dosage: OTHER FREQUENCY : 3 TIMES EVERY 4 WK;?
     Route: 042
     Dates: start: 20210503

REACTIONS (5)
  - Infusion site rash [None]
  - Infusion site pain [None]
  - Infusion site pruritus [None]
  - Infusion site swelling [None]
  - Skin warm [None]

NARRATIVE: CASE EVENT DATE: 20220125
